FAERS Safety Report 6805338 (Version 2)
Quarter: 2016Q4

REPORT INFORMATION
  Report Type: Spontaneous
  Country: US (occurrence: US)
  Receive Date: 20081106
  Receipt Date: 20161114
  Transmission Date: 20170207
  Serious: Yes (Other)
  Sender: FDA-Public Use
  Company Number: US-BAYER-200833793NA

PATIENT
  Sex: Male

DRUGS (1)
  1. MAGNEVIST [Suspect]
     Active Substance: GADOPENTETATE DIMEGLUMINE
     Indication: DEAFNESS UNILATERAL
     Dosage: UNK
     Dates: start: 2000, end: 20000615

REACTIONS (3)
  - Rash papular [Unknown]
  - Contrast media reaction [None]
  - Haemangioma of skin [None]

NARRATIVE: CASE EVENT DATE: 2000
